FAERS Safety Report 4699408-9 (Version None)
Quarter: 2005Q2

REPORT INFORMATION
  Report Type: 
  Country: None (occurrence: None)
  Receive Date: 20050621
  Receipt Date: 20050511
  Transmission Date: 20051028
  Serious: Yes (Death)
  Sender: FDA-Public Use
  Company Number: ENTC2005-0128

PATIENT
  Age: 71 Year
  Sex: Male

DRUGS (5)
  1. STALEVO 100 [Suspect]
     Indication: PARKINSON'S DISEASE
     Dosage: 100/25/200 MG X 4/DAY
     Route: 048
     Dates: start: 20050408, end: 20050415
  2. REQUIP [Concomitant]
  3. MANTADIX [Concomitant]
  4. EFFEXOR [Concomitant]
  5. COUMADIN [Concomitant]

REACTIONS (8)
  - AKINESIA [None]
  - ATRIAL FIBRILLATION [None]
  - CARDIAC DISORDER [None]
  - CONDITION AGGRAVATED [None]
  - DYSPHAGIA [None]
  - PNEUMONIA ASPIRATION [None]
  - RESPIRATORY DISORDER [None]
  - RESPIRATORY DISTRESS [None]
